FAERS Safety Report 25079062 (Version 1)
Quarter: 2025Q1

REPORT INFORMATION
  Report Type: Spontaneous
  Country: US (occurrence: US)
  Receive Date: 20250314
  Receipt Date: 20250314
  Transmission Date: 20250408
  Serious: No
  Sender: ITALFARMACO SPA
  Company Number: US-ITALFARMACO SPA-2172911

PATIENT
  Age: 6 Year
  Sex: Male
  Weight: 17.10 kg

DRUGS (1)
  1. DUVYZAT [Suspect]
     Active Substance: GIVINOSTAT
     Dates: start: 20241017

REACTIONS (3)
  - Gastroenteritis viral [Recovering/Resolving]
  - Product dose omission issue [Unknown]
  - Vomiting [Recovering/Resolving]
